FAERS Safety Report 4433272-8 (Version None)
Quarter: 2004Q3

REPORT INFORMATION
  Report Type: 
  Country: None (occurrence: None)
  Receive Date: 20040824
  Receipt Date: 20040809
  Transmission Date: 20050211
  Serious: Yes (Death, Hospitalization)
  Sender: FDA-Public Use
  Company Number: 04P-163-0269665-00

PATIENT
  Age: 60 Year
  Sex: Male
  Weight: 67.9 kg

DRUGS (5)
  1. HUMIRA [Suspect]
     Indication: RHEUMATOID ARTHRITIS
     Dosage: 40 MG, 1 IN 2 WK, SUBCUTANEOUS
     Route: 058
     Dates: start: 20040501, end: 20040714
  2. PREDNISONE [Concomitant]
  3. PANTOPRAZOLE [Concomitant]
  4. CARVEDILOL [Concomitant]
  5. HYDROCORTISONE [Concomitant]

REACTIONS (11)
  - ABDOMINAL PAIN [None]
  - ACUTE MYOCARDIAL INFARCTION [None]
  - ARTHRALGIA [None]
  - ARTHRITIS BACTERIAL [None]
  - DIARRHOEA [None]
  - INTESTINAL ISCHAEMIA [None]
  - KERATOCONJUNCTIVITIS SICCA [None]
  - MALAISE [None]
  - SEPTIC SHOCK [None]
  - SKIN LACERATION [None]
  - WOUND DRAINAGE [None]
